FAERS Safety Report 9547603 (Version 1)
Quarter: 2013Q2

REPORT INFORMATION
  Report Type: Spontaneous
  Country: US (occurrence: None)
  Receive Date: 20130606
  Receipt Date: 20130606
  Transmission Date: 20140414
  Serious: Yes (Hospitalization)
  Sender: FDA-Public Use
  Company Number: 163-POMAL-13034354

PATIENT
  Age: 72 Year
  Sex: Female

DRUGS (9)
  1. POMALYST (POMALIDOMIDE) (4 MILLIGRAM, CAPSULES) [Suspect]
     Indication: PLASMA CELL MYELOMA
     Dosage: 4 MG,  21 IN 21 D,  PO?03/05/2013 - TEMPORARILY INTERRUPTED
     Route: 048
     Dates: start: 20130305
  2. ASPIRIN LOW DOSE [Concomitant]
  3. BUMETANIDE (BUMETANIDE) [Concomitant]
  4. CALCIUM + D [Concomitant]
  5. CITALOPRAM HYDROBROMIDE (CITALOPRAM HYDROBROMIDE) [Concomitant]
  6. DEXAMETHASONE (DEXAMETHASONE) [Concomitant]
  7. HYDROCORTISONE (HYDROCORTISONE) [Concomitant]
  8. LISINOPRIL (LISINOPRIL) [Concomitant]
  9. METFORMIN HCL (METFORMIN HYDROCHLORIDE) [Concomitant]

REACTIONS (1)
  - Pneumonia [None]
